FAERS Safety Report 9734603 (Version 3)
Quarter: 2013Q4

REPORT INFORMATION
  Report Type: Report from Study
  Country: DE (occurrence: DE)
  Receive Date: 20131206
  Receipt Date: 20131219
  Transmission Date: 20140711
  Serious: Yes (Hospitalization)
  Sender: FDA-Public Use
  Company Number: DE-BEH-2010027052

PATIENT
  Age: 73 Year
  Sex: Female
  Weight: 80 kg

DRUGS (7)
  1. PRIVIGEN [Suspect]
     Indication: HUMORAL IMMUNE DEFECT
     Route: 042
     Dates: start: 20100317, end: 20100317
  2. PRIVIGEN [Suspect]
     Route: 042
     Dates: start: 20100415, end: 20100415
  3. PRIVIGEN [Suspect]
     Route: 042
     Dates: start: 20100520, end: 20100520
  4. PRIVIGEN [Suspect]
     Route: 042
     Dates: start: 20100617, end: 20100617
  5. ALLOPURINOL [Concomitant]
  6. IBUHEXAL [Concomitant]
  7. ANTIMYCOTICS [Concomitant]

REACTIONS (5)
  - Headache [Recovered/Resolved]
  - Cervical spinal stenosis [Recovered/Resolved]
  - Epistaxis [Recovered/Resolved]
  - Feeling cold [Recovered/Resolved]
  - Lumbar spinal stenosis [Recovered/Resolved]
